FAERS Safety Report 6202134-8 (Version None)
Quarter: 2009Q2

REPORT INFORMATION
  Report Type: 
  Country: None (occurrence: None)
  Receive Date: 20090520
  Receipt Date: 20090506
  Transmission Date: 20091009
  Serious: Yes (Hospitalization)
  Sender: FDA-Public Use
  Company Number: DSU-2009-01026

PATIENT
  Age: 75 Year
  Sex: Female
  Weight: 124.7392 kg

DRUGS (5)
  1. BENICAR [Suspect]
     Indication: HYPERTENSION
     Dosage: 40 MG (40 MG, QD), PER ORAL, 40 MG (40 MG, QD), PER ORAL, 40 MG (40 MG, QD), PER ORAL
     Route: 048
     Dates: start: 20070101, end: 20090301
  2. BENICAR [Suspect]
     Indication: HYPERTENSION
     Dosage: 40 MG (40 MG, QD), PER ORAL, 40 MG (40 MG, QD), PER ORAL, 40 MG (40 MG, QD), PER ORAL
     Route: 048
     Dates: start: 20090101, end: 20090401
  3. BENICAR [Suspect]
     Indication: HYPERTENSION
     Dosage: 40 MG (40 MG, QD), PER ORAL, 40 MG (40 MG, QD), PER ORAL, 40 MG (40 MG, QD), PER ORAL
     Route: 048
     Dates: start: 20090505, end: 20090505
  4. UNKNOWN DIURETIC [Concomitant]
  5. MOBIC [Concomitant]

REACTIONS (5)
  - COELIAC DISEASE [None]
  - COLD SWEAT [None]
  - DEHYDRATION [None]
  - VOMITING [None]
  - WEIGHT DECREASED [None]
